FAERS Safety Report 6228231-9 (Version None)
Quarter: 2009Q2

REPORT INFORMATION
  Report Type: 
  Country: None (occurrence: None)
  Receive Date: 20090610
  Receipt Date: 20090610
  Transmission Date: 20091009
  Serious: Yes (Life-Threatening, Disabling)
  Sender: FDA-Public Use
  Company Number: None

PATIENT
  Age: 83 Year
  Sex: Female
  Weight: 73 kg

DRUGS (2)
  1. SEROQUEL [Suspect]
     Indication: AGITATION
     Dosage: 25 MG  BID PO
     Route: 048
     Dates: start: 20081230, end: 20081231
  2. SEROQUEL [Suspect]
     Indication: ANXIETY
     Dosage: 25 MG  BID PO
     Route: 048
     Dates: start: 20081230, end: 20081231

REACTIONS (2)
  - LOSS OF CONSCIOUSNESS [None]
  - RESPIRATORY ARREST [None]
